FAERS Safety Report 18839519 (Version 1)
Quarter: 2021Q1

REPORT INFORMATION
  Report Type: Report from Study
  Country: US (occurrence: US)
  Receive Date: 20210203
  Receipt Date: 20210203
  Transmission Date: 20210419
  Serious: No
  Sender: FDA-Public Use
  Company Number: US-EXELIXIS-CABO-20031930

PATIENT
  Sex: Male

DRUGS (1)
  1. CABOMETYX [Suspect]
     Active Substance: CABOZANTINIB S-MALATE
     Indication: RENAL CANCER
     Dosage: ALTERNATING WITH 40 MG AND 20 MG EVERY OTHER DAY
     Route: 048
     Dates: start: 202006, end: 20200814

REACTIONS (3)
  - Nasal discomfort [Unknown]
  - Drug ineffective [Unknown]
  - Adverse drug reaction [Unknown]
